FAERS Safety Report 18523447 (Version 1)
Quarter: 2020Q4

REPORT INFORMATION
  Report Type: Spontaneous
  Country: GB (occurrence: GB)
  Receive Date: 20201119
  Receipt Date: 20201119
  Transmission Date: 20210114
  Serious: Yes (Life-Threatening)
  Sender: FDA-Public Use
  Company Number: GB-TEVA-2020-GB-1849574

PATIENT
  Age: 65 Year
  Sex: Female
  Weight: 86 kg

DRUGS (5)
  1. CO-CARELDOPA [Concomitant]
     Active Substance: CARBIDOPA\LEVODOPA
     Dosage: UNIT DOSE 4DF
     Dates: start: 20200522
  2. PNEUMOVAX 23 [Concomitant]
     Active Substance: PNEUMOCOCCAL VACCINE, POLYVALENT 23
     Dates: start: 20200928, end: 20200929
  3. OMEPRAZOLE. [Concomitant]
     Active Substance: OMEPRAZOLE
     Dosage: WITH NAPROXEN, 1DF
     Dates: start: 20201019
  4. NAPROXEN. [Suspect]
     Active Substance: NAPROXEN
     Dosage: UNIT DOSE 750MG
     Dates: start: 20201019
  5. DOMPERIDONE [Concomitant]
     Active Substance: DOMPERIDONE
     Dosage: TAKE ONE THREE TIMES A DAY FOR NA...
     Dates: start: 20200522

REACTIONS (1)
  - Diarrhoea [Recovered/Resolved]
